FAERS Safety Report 7239251-X (Version None)
Quarter: 2011Q1

REPORT INFORMATION
  Report Type: 
  Country: None (occurrence: None)
  Receive Date: 20110121
  Receipt Date: 20110119
  Transmission Date: 20110831
  Serious: No
  Sender: FDA-Public Use
  Company Number: US-PFIZER INC-2011013260

PATIENT
  Sex: Female
  Weight: 86.168 kg

DRUGS (4)
  1. ZANTAC [Concomitant]
     Indication: LIVER DISORDER
  2. MULTI-VITAMINS [Concomitant]
     Dosage: UNK
  3. TOVIAZ [Suspect]
     Indication: HYPERTONIC BLADDER
     Dosage: 8 MG, 1X/DAY
     Route: 048
     Dates: start: 20100101, end: 20110103
  4. ZANTAC [Concomitant]
     Indication: GASTROOESOPHAGEAL REFLUX DISEASE
     Dosage: 150 MG, 1X/DAY
     Route: 048

REACTIONS (5)
  - CONSTIPATION [None]
  - DRY EYE [None]
  - DYSPEPSIA [None]
  - DRY MOUTH [None]
  - ABDOMINAL PAIN UPPER [None]
